FAERS Safety Report 24710474 (Version 9)
Quarter: 2025Q4

REPORT INFORMATION
  Report Type: Spontaneous
  Country: TH (occurrence: TH)
  Receive Date: 20241209
  Receipt Date: 20251010
  Transmission Date: 20260118
  Serious: Yes (Hospitalization, Other)
  Sender: BRISTOL-MYERS SQUIBB COMPANY
  Company Number: TH-IPSEN Group, Research and Development-2024-24368

PATIENT
  Age: 63 Year
  Sex: Male

DRUGS (3)
  1. NIVOLUMAB [Suspect]
     Active Substance: NIVOLUMAB
     Indication: Renal cell carcinoma
     Dates: start: 20240604
  2. CABOMETYX [Suspect]
     Active Substance: CABOZANTINIB S-MALATE
     Indication: Renal cell carcinoma
     Dosage: 40 MG, QD
     Dates: start: 20240604
  3. CABOMETYX [Suspect]
     Active Substance: CABOZANTINIB S-MALATE
     Dosage: 40 MG, QD
     Dates: start: 20250701, end: 20250924

REACTIONS (7)
  - Abscess [Recovering/Resolving]
  - Abscess limb [Recovering/Resolving]
  - Pleural effusion [Recovering/Resolving]
  - Renal impairment [Recovering/Resolving]
  - Dyspnoea [Unknown]
  - Productive cough [Unknown]
  - Blood test abnormal [Recovering/Resolving]

NARRATIVE: CASE EVENT DATE: 20250923
